FAERS Safety Report 15646507 (Version 2)
Quarter: 2018Q4

REPORT INFORMATION
  Report Type: Spontaneous
  Country: JP (occurrence: JP)
  Receive Date: 20181122
  Receipt Date: 20181210
  Transmission Date: 20190205
  Serious: Yes (Death, Hospitalization, Other)
  Sender: FDA-Public Use
  Company Number: JP-BRISTOL-MYERS SQUIBB COMPANY-BMS-2018-109758

PATIENT
  Age: 74 Year
  Sex: Male

DRUGS (1)
  1. OPDIVO [Suspect]
     Active Substance: NIVOLUMAB
     Indication: NON-SMALL CELL LUNG CANCER RECURRENT
     Dosage: 3 MG/KG/DAY
     Route: 041
     Dates: end: 20181031

REACTIONS (3)
  - Fulminant type 1 diabetes mellitus [Fatal]
  - Colitis [Fatal]
  - Rash [Fatal]

NARRATIVE: CASE EVENT DATE: 20181102
